FAERS Safety Report 7782949-5 (Version None)
Quarter: 2011Q3

REPORT INFORMATION
  Report Type: 
  Country: None (occurrence: None)
  Receive Date: 20110928
  Receipt Date: 20110923
  Transmission Date: 20111222
  Serious: Yes (Other)
  Sender: FDA-Public Use
  Company Number: US-PFIZER INC-2011227740

PATIENT
  Sex: Male

DRUGS (1)
  1. LYRICA [Suspect]
     Indication: DIABETIC NEUROPATHY
     Dosage: UNK
     Route: 048
     Dates: start: 19990101

REACTIONS (1)
  - NEUROPATHY PERIPHERAL [None]
